FAERS Safety Report 11090010 (Version 2)
Quarter: 2015Q2

REPORT INFORMATION
  Report Type: Spontaneous
  Country: IT (occurrence: None)
  Receive Date: 20150501
  Receipt Date: 20150518
  Transmission Date: 20150821
  Serious: Yes (Hospitalization)
  Sender: FDA-Public Use
  Company Number: IT-H14001-15-00640

PATIENT
  Age: 76 Year
  Sex: Female

DRUGS (5)
  1. ISOPTIN (VERAPAMIL HYDROCHLORIDE) [Concomitant]
  2. AMIODARONE HIKMA (AMIODARONE) (50 MILLIGRAM/MILLILITERS, INJECTION) (AMIODARONE) [Suspect]
     Active Substance: AMIODARONE
     Indication: SUPRAVENTRICULAR TACHYCARDIA
     Dosage: (1 DOSAGE FORMS,TOTAL),INTRAVENOUS (NOT OTHERWISE SPECIFIED)
     Route: 042
     Dates: start: 20150204, end: 20150204
  3. SIVASTIN (SIMVASTATIN) [Concomitant]
  4. TRIATEC (RAMIPRIL) [Concomitant]
     Active Substance: RAMIPRIL
  5. LASIX [Concomitant]
     Active Substance: FUROSEMIDE

REACTIONS (3)
  - Burning sensation [None]
  - Hyperaemia [None]
  - Malaise [None]

NARRATIVE: CASE EVENT DATE: 20150204
